FAERS Safety Report 7325210-5 (Version None)
Quarter: 2011Q1

REPORT INFORMATION
  Report Type: 
  Country: None (occurrence: None)
  Receive Date: 20110302
  Receipt Date: 20110211
  Transmission Date: 20110831
  Serious: No
  Sender: FDA-Public Use
  Company Number: US-PFIZER INC-2011038139

PATIENT
  Sex: Female

DRUGS (12)
  1. METILDIGOXIN [Concomitant]
     Indication: CARDIAC FAILURE
     Dosage: 0.1 MG, 1X/DAY
     Route: 048
  2. SPIRONOLACTONE [Concomitant]
     Indication: HYPERTONIA
     Dosage: 25 MG, 2X/DAY
     Route: 048
  3. ATARAX [Suspect]
     Dosage: 12.5 MG, UNK
     Route: 048
  4. METOPROLOL [Concomitant]
     Indication: TACHYCARDIA
  5. ATARAX [Suspect]
     Dosage: 12.5 MG, UNK
     Route: 048
  6. ATARAX [Suspect]
     Indication: BALANCE DISORDER
     Dosage: 50 MG, UNK
     Route: 048
  7. METOPROLOL [Concomitant]
     Indication: HYPERTONIA
     Dosage: 50 MG, 1X/DAY
     Route: 048
  8. ENALAPRIL [Concomitant]
     Indication: HYPERTONIA
     Dosage: 10 MG, 2X/DAY
     Route: 048
  9. FUROSEMIDE [Concomitant]
     Indication: HYPERTONIA
     Dosage: 20 MG, ALTERNATE DAY
     Route: 048
  10. FUROSEMIDE [Concomitant]
     Dosage: 10 MG, TOTAL DAILY DOSE
     Route: 048
  11. ATARAX [Suspect]
     Dosage: 25 MG, UNK
     Route: 048
  12. ACETYLSALICYLIC ACID [Concomitant]
     Indication: HYPERTONIA
     Route: 048

REACTIONS (1)
  - INSOMNIA [None]
